FAERS Safety Report 13074083 (Version 1)
Quarter: 2016Q4

REPORT INFORMATION
  Report Type: Report from Study
  Country: US (occurrence: US)
  Receive Date: 20161229
  Receipt Date: 20161229
  Transmission Date: 20170207
  Serious: Yes (Hospitalization, Other)
  Sender: FDA-Public Use
  Company Number: US-AMGEN-USASL2016183159

PATIENT
  Age: 66 Year
  Sex: Male

DRUGS (1)
  1. REPATHA [Suspect]
     Active Substance: EVOLOCUMAB
     Indication: BLOOD CHOLESTEROL INCREASED
     Dosage: 140 MG, Q2WK
     Route: 065
     Dates: start: 201602

REACTIONS (7)
  - Gait disturbance [Unknown]
  - Hypotonia [Unknown]
  - Vitamin D deficiency [Unknown]
  - Pain in extremity [Unknown]
  - Hospitalisation [Unknown]
  - Muscle spasms [Unknown]
  - Fear of death [Unknown]
